FAERS Safety Report 22002930 (Version 2)
Quarter: 2023Q1

REPORT INFORMATION
  Report Type: Spontaneous
  Country: US (occurrence: US)
  Receive Date: 20230217
  Receipt Date: 20230308
  Transmission Date: 20230417
  Serious: No
  Sender: FDA-Public Use
  Company Number: US-SA-SAC20230214001349

PATIENT
  Sex: Male

DRUGS (2)
  1. ALPROLIX [Suspect]
     Active Substance: EFTRENONACOG ALFA
     Indication: Factor IX deficiency
     Dosage: 800 IU, QW (INFUSE 800 UNITS (720-880) SLOW IV PUSH EVERY 7 DAYS AS NEEDED)
     Route: 042
     Dates: start: 202301
  2. ALPROLIX [Suspect]
     Active Substance: EFTRENONACOG ALFA
     Indication: Factor IX deficiency
     Dosage: 800 IU, QW (INFUSE 800 UNITS (720-880) SLOW IV PUSH EVERY 7 DAYS AS NEEDED)
     Route: 042
     Dates: start: 202301

REACTIONS (2)
  - Pyrexia [Unknown]
  - Central venous catheterisation [Unknown]
